FAERS Safety Report 21789609 (Version 1)
Quarter: 2022Q4

REPORT INFORMATION
  Report Type: Report from Study
  Country: RU (occurrence: RU)
  Receive Date: 20221228
  Receipt Date: 20221228
  Transmission Date: 20230113
  Serious: Yes (Hospitalization)
  Sender: FDA-Public Use
  Company Number: RU-VIIV HEALTHCARE LIMITED-RU2022191273

PATIENT

DRUGS (3)
  1. CABOTEGRAVIR [Suspect]
     Active Substance: CABOTEGRAVIR
     Indication: HIV infection
     Dosage: 1 DF, QD
     Route: 048
     Dates: start: 20180124, end: 20180321
  2. CYANOCOBALAMIN [Suspect]
     Active Substance: CYANOCOBALAMIN
     Indication: Hypertrophy
     Dosage: 2 ML, 1D
     Route: 030
     Dates: start: 20220609, end: 20220616
  3. CYANOCOBALAMIN [Suspect]
     Active Substance: CYANOCOBALAMIN
     Indication: Myalgia
     Dosage: 2 ML, WE
     Route: 030
     Dates: start: 20221001, end: 20221119

REACTIONS (1)
  - Injection site abscess [Recovered/Resolved with Sequelae]

NARRATIVE: CASE EVENT DATE: 20221213
